FAERS Safety Report 14474882 (Version 1)
Quarter: 2018Q1

REPORT INFORMATION
  Report Type: Spontaneous
  Country: CN (occurrence: CN)
  Receive Date: 20180201
  Receipt Date: 20180201
  Transmission Date: 20180509
  Serious: Yes (Life-Threatening, Other)
  Sender: FDA-Public Use
  Company Number: CN-MYLANLABS-2018M1006704

PATIENT
  Age: 20 Year
  Sex: Female

DRUGS (2)
  1. GIMERACIL;OTERACIL;TEGAFUR [Suspect]
     Active Substance: GIMERACIL\OTERACIL\TEGAFUR
     Indication: MALIGNANT MELANOMA
     Dosage: 100MG ON DAYS 1 TO 14
     Route: 065
  2. GEMCITABINE [Suspect]
     Active Substance: GEMCITABINE\GEMCITABINE HYDROCHLORIDE
     Indication: MALIGNANT MELANOMA
     Dosage: 1400MG ON DAYS 1 AND 8
     Route: 065

REACTIONS (2)
  - Anaphylactic shock [Recovering/Resolving]
  - Epilepsy [Recovering/Resolving]
